FAERS Safety Report 9229875 (Version 2)
Quarter: 2013Q2

REPORT INFORMATION
  Report Type: Report from Study
  Country: GB (occurrence: GB)
  Receive Date: 20130415
  Receipt Date: 20130613
  Transmission Date: 20140414
  Serious: Yes (Hospitalization)
  Sender: FDA-Public Use
  Company Number: GB-AMGEN-GBRCT2013025525

PATIENT
  Age: 80 Year
  Sex: Male
  Weight: 78 kg

DRUGS (5)
  1. ETANERCEPT [Suspect]
     Indication: RHEUMATOID ARTHRITIS
     Dosage: 25 MG, 2 TIMES/WK
     Route: 065
     Dates: start: 20031202
  2. ADCAL D3 [Concomitant]
     Dosage: 1 DF, 2X/DAY
     Route: 048
  3. ALENDRONATE SODIUM [Concomitant]
     Dosage: 70 MG, WEEKLY ON SUNDAYS
     Route: 048
  4. SYMBICORT [Concomitant]
     Dosage: 1 DF, 1X/DAY
     Route: 055
  5. PREDNISOLONE [Concomitant]
     Dosage: 2.5 MG, ALTERNATE DAY
     Route: 048

REACTIONS (2)
  - Circulatory collapse [Unknown]
  - Hypotension [Unknown]
